FAERS Safety Report 17616731 (Version 1)
Quarter: 2020Q1

REPORT INFORMATION
  Report Type: Spontaneous
  Country: US (occurrence: US)
  Receive Date: 20200331
  Receipt Date: 20200331
  Transmission Date: 20200409
  Serious: No
  Sender: FDA-Public Use
  Company Number: None

PATIENT
  Age: 17 Year
  Sex: Male

DRUGS (1)
  1. OMNITROPE [Suspect]
     Active Substance: SOMATROPIN
     Route: 058
     Dates: start: 20200131

REACTIONS (3)
  - Wrong technique in product usage process [None]
  - Injection site bruising [None]
  - Injection site swelling [None]

NARRATIVE: CASE EVENT DATE: 20200327
